FAERS Safety Report 4600109-3 (Version None)
Quarter: 2005Q1

REPORT INFORMATION
  Report Type: 
  Country: None (occurrence: None)
  Receive Date: 20050303
  Receipt Date: 20050224
  Transmission Date: 20050727
  Serious: Yes (Other)
  Sender: FDA-Public Use
  Company Number: 2005-00688

PATIENT
  Age: 56 Year
  Sex: Male

DRUGS (5)
  1. FLUOROURACIL [Suspect]
     Indication: COLON CANCER
     Dosage: 1600 MG/M2, FOR 48 HRS/CYCLE, INTRAVENOUS
     Route: 042
  2. FLUOROURACIL [Suspect]
     Indication: METASTASES TO LIVER
     Dosage: 1600 MG/M2, FOR 48 HRS/CYCLE, INTRAVENOUS
     Route: 042
  3. OXALIPLATIN [Concomitant]
  4. LEUCOVORIN CALCIUM [Concomitant]
  5. GANISERTON [Concomitant]

REACTIONS (1)
  - GRAND MAL CONVULSION [None]
